FAERS Safety Report 6611325-3 (Version None)
Quarter: 2010Q1

REPORT INFORMATION
  Report Type: 
  Country: None (occurrence: None)
  Receive Date: 20100301
  Receipt Date: 20100301
  Transmission Date: 20100710
  Serious: Yes (Other)
  Sender: FDA-Public Use
  Company Number: None

PATIENT
  Age: 45 Year
  Sex: Male
  Weight: 79.3795 kg

DRUGS (1)
  1. LEXAPRO [Suspect]
     Indication: MAJOR DEPRESSION
     Dosage: 10 MG DAILY PO
     Route: 048
     Dates: start: 20100216, end: 20100228

REACTIONS (1)
  - ERECTILE DYSFUNCTION [None]
